FAERS Safety Report 14713668 (Version 1)
Quarter: 2018Q2

REPORT INFORMATION
  Report Type: Spontaneous
  Country: IT (occurrence: IT)
  Receive Date: 20180404
  Receipt Date: 20180404
  Transmission Date: 20180711
  Serious: Yes (Hospitalization)
  Sender: FDA-Public Use
  Company Number: IT-TEVA-2018-IT-874969

PATIENT
  Age: 54 Year
  Sex: Male

DRUGS (5)
  1. NORVASC [Concomitant]
     Active Substance: AMLODIPINE BESYLATE
     Route: 048
  2. DEPAKIN CHRONO 300 MG PROLONGED RELEASE TABLETS [Suspect]
     Active Substance: VALPROATE SODIUM
     Indication: EPILEPSY
     Route: 048
     Dates: start: 20170101, end: 20171019
  3. RISPERIDONE. [Suspect]
     Active Substance: RISPERIDONE
     Indication: SCHIZOPHRENIA
     Route: 048
     Dates: start: 20170101, end: 20171019
  4. CITALOPRAM  GERMED PHARMA [Concomitant]
  5. SERENASE (HALOPERIDOL) [Suspect]
     Active Substance: HALOPERIDOL
     Indication: RESTLESSNESS
     Route: 048
     Dates: start: 20170101, end: 20171019

REACTIONS (2)
  - Psychotic disorder [Unknown]
  - Agitation [Unknown]

NARRATIVE: CASE EVENT DATE: 20171019
